FAERS Safety Report 18030726 (Version 1)
Quarter: 2020Q3

REPORT INFORMATION
  Report Type: Spontaneous
  Country: AU (occurrence: AU)
  Receive Date: 20200716
  Receipt Date: 20200716
  Transmission Date: 20201103
  Serious: Yes (Other)
  Sender: FDA-Public Use
  Company Number: AU-PFIZER INC-2020269574

PATIENT
  Age: 9 Year
  Sex: Female

DRUGS (3)
  1. CEFACLOR. [Concomitant]
     Active Substance: CEFACLOR
     Indication: RHINITIS
     Dosage: UNK (SUSPENSION)
  2. HYDROCORTISONE. [Suspect]
     Active Substance: HYDROCORTISONE
     Indication: ASTHMA
     Dosage: UNK
     Route: 042
  3. HYDROCORTISONE. [Suspect]
     Active Substance: HYDROCORTISONE
     Indication: WHEEZING

REACTIONS (1)
  - Urticaria [Recovered/Resolved]
